FAERS Safety Report 7424560-1 (Version None)
Quarter: 2011Q2

REPORT INFORMATION
  Report Type: 
  Country: None (occurrence: None)
  Receive Date: 20110419
  Receipt Date: 20110412
  Transmission Date: 20111010
  Serious: Yes (Hospitalization, Other)
  Sender: FDA-Public Use
  Company Number: CZ-PFIZER INC-2011056751

PATIENT
  Age: 36 Year
  Sex: Female

DRUGS (1)
  1. DEPO-PROVERA [Suspect]
     Indication: CONTRACEPTION
     Dosage: UNK
     Dates: start: 20101217

REACTIONS (5)
  - ASTHMA [None]
  - ANGIOEDEMA [None]
  - ABDOMINAL DISTENSION [None]
  - URTICARIA CHRONIC [None]
  - ERYTHEMA [None]
